FAERS Safety Report 9206558 (Version 1)
Quarter: 2013Q2

REPORT INFORMATION
  Report Type: Spontaneous
  Country: US (occurrence: None)
  Receive Date: 20130401
  Receipt Date: 20130401
  Transmission Date: 20140414
  Serious: Yes (Hospitalization)
  Sender: FDA-Public Use
  Company Number: None

PATIENT
  Age: 52 Year
  Sex: Male
  Weight: 80.7 kg

DRUGS (2)
  1. CISPLATIN [Suspect]
  2. DOCETAXEL (TAXOTERE) [Suspect]

REACTIONS (2)
  - Colitis [None]
  - Gastroenteritis [None]
